FAERS Safety Report 12263825 (Version 1)
Quarter: 2016Q2

REPORT INFORMATION
  Report Type: Spontaneous
  Country: US (occurrence: US)
  Receive Date: 20160413
  Receipt Date: 20160413
  Transmission Date: 20160815
  Serious: No
  Sender: FDA-Public Use
  Company Number: US-JNJFOC-20160315332

PATIENT
  Age: 65 Year
  Sex: Female
  Weight: 74.84 kg

DRUGS (5)
  1. SUDAFED [Suspect]
     Active Substance: PSEUDOEPHEDRINE HYDROCHLORIDE
     Indication: PARANASAL SINUS DISCOMFORT
     Dosage: 2 TABLETS, 5-6 HOURS
     Route: 048
     Dates: start: 20160212, end: 20160229
  2. SUDAFED [Suspect]
     Active Substance: PSEUDOEPHEDRINE HYDROCHLORIDE
     Indication: NASAL DISORDER
     Dosage: 2 TABLETS, 5-6 HOURS
     Route: 048
     Dates: start: 20160212, end: 20160229
  3. SUDAFED [Suspect]
     Active Substance: PSEUDOEPHEDRINE HYDROCHLORIDE
     Indication: PYREXIA
     Dosage: 2 TABLETS, 5-6 HOURS
     Route: 048
     Dates: start: 20160212, end: 20160229
  4. MUCINEX [Concomitant]
     Active Substance: GUAIFENESIN
     Indication: PRODUCT USED FOR UNKNOWN INDICATION
     Route: 065
     Dates: start: 20160212
  5. SUDAFED [Suspect]
     Active Substance: PSEUDOEPHEDRINE HYDROCHLORIDE
     Indication: RHINORRHOEA
     Dosage: 2 TABLETS, 5-6 HOURS
     Route: 048
     Dates: start: 20160212, end: 20160229

REACTIONS (1)
  - Urinary incontinence [Recovered/Resolved]

NARRATIVE: CASE EVENT DATE: 20160302
